FAERS Safety Report 26129520 (Version 2)
Quarter: 2025Q4

REPORT INFORMATION
  Report Type: Spontaneous
  Country: CN (occurrence: CN)
  Receive Date: 20251208
  Receipt Date: 20251210
  Transmission Date: 20260117
  Serious: Yes (Other)
  Sender: MELINTA THERAPEUTICS
  Company Number: CN-ASTRAZENECA-202511CHN023941CN

PATIENT

DRUGS (1)
  1. METOPROLOL SUCCINATE [Suspect]
     Active Substance: METOPROLOL SUCCINATE
     Indication: Product used for unknown indication
     Dosage: 23.750000 MILLIGRAM,1 TIMES 1 DAY
     Route: 048
     Dates: start: 20251103, end: 20251119

REACTIONS (2)
  - Arrhythmia [Recovering/Resolving]
  - Blood pressure decreased [Recovering/Resolving]

NARRATIVE: CASE EVENT DATE: 20251119
